FAERS Safety Report 18391424 (Version 1)
Quarter: 2020Q4

REPORT INFORMATION
  Report Type: Spontaneous
  Country: US (occurrence: US)
  Receive Date: 20201015
  Receipt Date: 20201015
  Transmission Date: 20210114
  Serious: Yes (Other)
  Sender: FDA-Public Use
  Company Number: None

PATIENT
  Age: 55 Year
  Sex: Female
  Weight: 62.1 kg

DRUGS (7)
  1. VERZENIO [Concomitant]
     Active Substance: ABEMACICLIB
  2. VITAMIN C [Concomitant]
     Active Substance: ASCORBIC ACID
  3. PANTOPRAZOLE 40MG [Concomitant]
     Active Substance: PANTOPRAZOLE SODIUM
  4. PROCHLORPERAZINE 10MG [Concomitant]
  5. TUMS 500MG [Concomitant]
  6. VITAMIN D3 COMPLETE [Concomitant]
  7. CAPECITABINE. [Suspect]
     Active Substance: CAPECITABINE
     Indication: NEOPLASM MALIGNANT
     Dosage: ?          OTHER FREQUENCY:QD D1-D7;?
     Route: 048
     Dates: start: 20200129, end: 20200923

REACTIONS (1)
  - Disease progression [None]

NARRATIVE: CASE EVENT DATE: 20201015
